FAERS Safety Report 8852197 (Version 1)
Quarter: 2012Q4

REPORT INFORMATION
  Report Type: 
  Country: KR (occurrence: KR)
  Receive Date: 20121022
  Receipt Date: 20121022
  Transmission Date: 20130627
  Serious: Yes (Other)
  Sender: FDA-Public Use
  Company Number: KR-ROXANE LABORATORIES, INC.-2012-RO-02020RO

PATIENT
  Age: 23 Year
  Sex: Male

DRUGS (4)
  1. RISPERIDONE [Suspect]
     Indication: SCHIZOPHRENIA
     Dosage: 8 mg
  2. RISPERIDONE [Suspect]
     Dosage: 6 mg
  3. AMISULPRIDE [Suspect]
     Indication: SCHIZOPHRENIA
     Dosage: 200 mg
  4. AMISULPRIDE [Suspect]
     Dosage: 600 mg

REACTIONS (1)
  - Tongue pigmentation [Recovered/Resolved]
